FAERS Safety Report 5815429-4 (Version None)
Quarter: 2008Q3

REPORT INFORMATION
  Report Type: 
  Country: None (occurrence: None)
  Receive Date: 20080718
  Receipt Date: 20080708
  Transmission Date: 20090109
  Serious: Yes (Hospitalization)
  Sender: FDA-Public Use
  Company Number: US-PFIZER INC-2008056656

PATIENT
  Sex: Female
  Weight: 55.4 kg

DRUGS (9)
  1. PREDNISONE TAB [Suspect]
  2. ETANERCEPT [Suspect]
     Indication: RHEUMATOID ARTHRITIS
     Route: 058
  3. METHOTREXATE [Concomitant]
     Route: 048
  4. ESOMEPRAZOLE MAGNESIUM [Concomitant]
  5. ESCITALOPRAM [Concomitant]
  6. ATORVASTATIN CALCIUM [Concomitant]
  7. METHYLPHENIDATE HCL [Concomitant]
  8. THEOPHYLLINE [Concomitant]
  9. ACTONEL [Concomitant]

REACTIONS (1)
  - AORTIC DISSECTION [None]
